FAERS Safety Report 19359544 (Version 3)
Quarter: 2022Q1

REPORT INFORMATION
  Report Type: Spontaneous
  Country: JP (occurrence: JP)
  Receive Date: 20210602
  Receipt Date: 20220223
  Transmission Date: 20220423
  Serious: Yes (Other)
  Sender: FDA-Public Use
  Company Number: JP-JNJFOC-20210600269

PATIENT
  Age: 44 Year
  Sex: Male

DRUGS (2)
  1. IMBRUVICA [Suspect]
     Active Substance: IBRUTINIB
     Indication: Chronic lymphocytic leukaemia
     Dosage: 140MG
     Route: 048
     Dates: start: 201904, end: 20201221
  2. VENETOCLAX [Concomitant]
     Active Substance: VENETOCLAX
     Indication: Chronic lymphocytic leukaemia
     Dosage: START PERIOD: 2 DAYS
     Route: 048
     Dates: start: 20201222

REACTIONS (4)
  - Splenic rupture [Recovered/Resolved]
  - Splenomegaly [Unknown]
  - Therapeutic product effect incomplete [Unknown]
  - Lymphocyte count increased [Unknown]

NARRATIVE: CASE EVENT DATE: 20201001
